FAERS Safety Report 9928638 (Version 1)
Quarter: 2014Q1

REPORT INFORMATION
  Report Type: Spontaneous
  Country: NL (occurrence: NL)
  Receive Date: 20140227
  Receipt Date: 20140227
  Transmission Date: 20141002
  Serious: Yes (Other)
  Sender: FDA-Public Use
  Company Number: NL-PFIZER INC-2014056131

PATIENT
  Age: 83 Year
  Sex: Female
  Weight: 59 kg

DRUGS (11)
  1. LYRICA [Suspect]
     Indication: NEURALGIA
     Dosage: 75 MG, 2X/DAY
     Dates: start: 20140206, end: 20140207
  2. LANOXIN [Concomitant]
     Dosage: 0.125 MG, 1X/DAY
     Dates: end: 20140207
  3. AMLODIPINE BESILATE [Concomitant]
     Dosage: 10 MG, 1X/DAY
     Dates: end: 20140207
  4. NEXIUM [Concomitant]
     Dosage: 40 MG, 1X/DAY
  5. METOCLOPRAMIDE [Concomitant]
     Dosage: 10 MG, 4X/DAY
  6. MOVICOLON [Concomitant]
     Dosage: 1 DF, 1X/DAY
  7. SIMVASTATIN [Concomitant]
     Dosage: 40 MG, 1X/DAY
  8. KETOCONAZOLE [Concomitant]
     Dosage: 1 DF TWICE WEEKLY
  9. PARACETAMOL [Concomitant]
     Dosage: 100 MG, 3X/DAY
     Route: 054
  10. COLEX KLYSMA [Concomitant]
     Dosage: UNK
  11. EMOLLIENTS AND PROTECTIVES [Concomitant]
     Dosage: UNK

REACTIONS (3)
  - Loss of consciousness [Recovered/Resolved]
  - Apnoeic attack [Recovered/Resolved]
  - Bradycardia [Recovered/Resolved]
